FAERS Safety Report 8477521 (Version 2)
Quarter: 2013Q3

REPORT INFORMATION
  Report Type: Spontaneous
  Country: MX (occurrence: None)
  Receive Date: 20120319
  Receipt Date: 20130717
  Transmission Date: 20140515
  Serious: Yes (Other)
  Sender: FDA-Public Use
  Company Number: ENTC2012-0094

PATIENT
  Age: 92 Year
  Sex: Female

DRUGS (7)
  1. STALEVO [Suspect]
     Indication: PARKINSON^S DISEASE
     Dosage: HALF TABLET (100/25/200 MG) DAILY, UNKNOWN
     Dates: start: 201010
  2. PROTALGINE [Concomitant]
  3. BICONCORD [Concomitant]
  4. AKATINOL [Concomitant]
  5. LEVOTHYROXINE [Concomitant]
  6. ASPIRIN [Concomitant]
  7. QUETIAPINE [Concomitant]

REACTIONS (8)
  - Wrong technique in drug usage process [None]
  - Pubis fracture [None]
  - Weight decreased [None]
  - Bradykinesia [None]
  - Dementia [None]
  - Hallucination, visual [None]
  - Delusion [None]
  - Off label use [None]
